FAERS Safety Report 26192006 (Version 1)
Quarter: 2025Q4

REPORT INFORMATION
  Report Type: Spontaneous
  Country: EU (occurrence: EU)
  Receive Date: 20251223
  Receipt Date: 20251223
  Transmission Date: 20260118
  Serious: Yes (Other)
  Sender: MERCK SHARP & DOHME LLC
  Company Number: EU-009507513-2361819

PATIENT
  Age: 16 Year
  Sex: Male

DRUGS (1)
  1. PEMBROLIZUMAB [Suspect]
     Active Substance: PEMBROLIZUMAB
     Indication: Grey zone lymphoma
     Dosage: DOSE OF 2 MG/KG EVERY 3-4 WEEKS WAS USED

REACTIONS (2)
  - Pneumonia fungal [Recovered/Resolved]
  - Off label use [Unknown]
